FAERS Safety Report 23178119 (Version 2)
Quarter: 2023Q4

REPORT INFORMATION
  Report Type: Spontaneous
  Country: US (occurrence: US)
  Receive Date: 20231113
  Receipt Date: 20231214
  Transmission Date: 20240110
  Serious: No
  Sender: FDA-Public Use
  Company Number: US-JNJFOC-20231124657

PATIENT
  Age: 25 Year
  Sex: Male
  Weight: 81.72 kg

DRUGS (1)
  1. SPRAVATO [Suspect]
     Active Substance: ESKETAMINE
     Indication: Major depression
     Route: 065
     Dates: start: 20231107

REACTIONS (1)
  - Drug ineffective [Unknown]
